FAERS Safety Report 12535938 (Version 1)
Quarter: 2016Q3

REPORT INFORMATION
  Report Type: Spontaneous
  Country: US (occurrence: None)
  Receive Date: 20160706
  Receipt Date: 20160706
  Transmission Date: 20161109
  Serious: No
  Sender: FDA-Public Use
  Company Number: None

PATIENT
  Age: 82 Year
  Sex: Female
  Weight: 70.76 kg

DRUGS (9)
  1. ATORVASTATIN [Concomitant]
     Active Substance: ATORVASTATIN
  2. OMEPRAZOLE. [Concomitant]
     Active Substance: OMEPRAZOLE
  3. METAMUCEL [Concomitant]
  4. VITAMIN D3 [Concomitant]
     Active Substance: CHOLECALCIFEROL
  5. HYDROCORTISONE 2.5% QUALITEST (LOTION) NYAMYC 100000 UN POWDER UPSH-SMITH [Suspect]
     Active Substance: HYDROCORTISONE
  6. ALPRAZOLAM. [Concomitant]
     Active Substance: ALPRAZOLAM
  7. MULTIVITAMIN [Concomitant]
     Active Substance: VITAMINS
  8. OMEGA 3 FISH OIL [Concomitant]
     Active Substance: FISH OIL\OMEGA-3 FATTY ACIDS
  9. BENZAP/HCTZ [Concomitant]

REACTIONS (2)
  - Skin candida [None]
  - Rash [None]

NARRATIVE: CASE EVENT DATE: 2011
